APPROVED DRUG PRODUCT: OMEPRAZOLE AND SODIUM BICARBONATE
Active Ingredient: OMEPRAZOLE; SODIUM BICARBONATE
Strength: 40MG;1.1GM
Dosage Form/Route: CAPSULE;ORAL
Application: A212587 | Product #002 | TE Code: AB
Applicant: ANDA REPOSITORY LLC
Approved: Apr 30, 2020 | RLD: No | RS: No | Type: RX